FAERS Safety Report 6866576-X (Version None)
Quarter: 2010Q3

REPORT INFORMATION
  Report Type: 
  Country: None (occurrence: None)
  Receive Date: 20100722
  Receipt Date: 20100719
  Transmission Date: 20110219
  Serious: Yes (Death, Hospitalization, Other)
  Sender: FDA-Public Use
  Company Number: US-ASTRAZENECA-2010SE11388

PATIENT
  Age: 27786 Day
  Sex: Male
  Weight: 83 kg

DRUGS (8)
  1. CRESTOR [Suspect]
     Indication: BLOOD CHOLESTEROL INCREASED
     Route: 048
     Dates: start: 20081001, end: 20090601
  2. CRESTOR [Suspect]
     Route: 048
     Dates: start: 20090701, end: 20090801
  3. LOVASTATIN [Suspect]
     Route: 065
  4. CYCLOBENZAPRINE [Suspect]
     Indication: HEADACHE
     Dates: start: 20090805, end: 20090809
  5. ADVIL LIQUI-GELS [Suspect]
     Indication: HEADACHE
     Dates: start: 20090805, end: 20090809
  6. ATENOLOL [Concomitant]
  7. FLOMAX [Concomitant]
  8. LACUTOSE [Concomitant]

REACTIONS (7)
  - CONFUSIONAL STATE [None]
  - HALLUCINATION [None]
  - HEADACHE [None]
  - PNEUMONIA [None]
  - RENAL FAILURE [None]
  - RHABDOMYOLYSIS [None]
  - VASCULITIS [None]
